FAERS Safety Report 12180531 (Version 3)
Quarter: 2016Q1

REPORT INFORMATION
  Report Type: Spontaneous
  Country: US (occurrence: US)
  Receive Date: 20160315
  Receipt Date: 20160324
  Transmission Date: 20160526
  Serious: Yes (Hospitalization, Other)
  Sender: FDA-Public Use
  Company Number: US-GLAXOSMITHKLINE-US2016034505

PATIENT
  Age: 49 Year
  Sex: Female

DRUGS (11)
  1. ALBUTEROL SULFATE. [Concomitant]
     Active Substance: ALBUTEROL SULFATE
  2. IMURAN [Concomitant]
     Active Substance: AZATHIOPRINE
  3. FLUTICASONE [Concomitant]
     Active Substance: FLUTICASONE\FLUTICASONE PROPIONATE
  4. NUCALA [Suspect]
     Active Substance: MEPOLIZUMAB
     Indication: ASTHMA
     Route: 058
     Dates: start: 20160212
  5. ALLEGRA [Concomitant]
     Active Substance: FEXOFENADINE HYDROCHLORIDE
  6. RAMIPRIL. [Concomitant]
     Active Substance: RAMIPRIL
  7. XANAX [Concomitant]
     Active Substance: ALPRAZOLAM
  8. PREDNISONE. [Concomitant]
     Active Substance: PREDNISONE
  9. XOPENEX [Concomitant]
     Active Substance: LEVALBUTEROL HYDROCHLORIDE
  10. QVAR [Concomitant]
     Active Substance: BECLOMETHASONE DIPROPIONATE
  11. NUCALA [Suspect]
     Active Substance: MEPOLIZUMAB
     Indication: PULMONARY GRANULOMA

REACTIONS (10)
  - Dizziness [Not Recovered/Not Resolved]
  - Hospitalisation [Unknown]
  - Emergency care [Unknown]
  - Chest discomfort [Unknown]
  - Headache [Not Recovered/Not Resolved]
  - Erythema [Not Recovered/Not Resolved]
  - Flushing [Unknown]
  - Paraesthesia oral [Unknown]
  - Fatigue [Not Recovered/Not Resolved]
  - Paraesthesia [Not Recovered/Not Resolved]

NARRATIVE: CASE EVENT DATE: 20160212
